FAERS Safety Report 9441764 (Version 2)
Quarter: 2013Q4

REPORT INFORMATION
  Report Type: Spontaneous
  Country: FR (occurrence: FR)
  Receive Date: 20130806
  Receipt Date: 20131003
  Transmission Date: 20140711
  Serious: Yes (Hospitalization, Disabling, Other)
  Sender: FDA-Public Use
  Company Number: FR-AMGEN-FRASP2013054648

PATIENT
  Age: 74 Year
  Sex: Female
  Weight: 90 kg

DRUGS (3)
  1. ENBREL [Suspect]
     Indication: RHEUMATOID ARTHRITIS
     Dosage: 25 MG, 2X/WEEK
     Route: 058
     Dates: start: 2006, end: 20130710
  2. PLAVIX [Concomitant]
     Indication: ISCHAEMIC CARDIOMYOPATHY
     Dosage: 1 DF, 1X/DAY
     Route: 048
  3. KARDEGIC [Concomitant]
     Indication: ISCHAEMIC CARDIOMYOPATHY
     Dosage: 75 MG, 1X/DAY
     Route: 048

REACTIONS (3)
  - Ulcerative keratitis [Not Recovered/Not Resolved]
  - Corneal perforation [Not Recovered/Not Resolved]
  - Visual acuity reduced [Not Recovered/Not Resolved]
